FAERS Safety Report 6891647-1 (Version None)
Quarter: 2010Q3

REPORT INFORMATION
  Report Type: 
  Country: None (occurrence: None)
  Receive Date: 20100731
  Receipt Date: 20070815
  Transmission Date: 20110219
  Serious: Yes (Other)
  Sender: FDA-Public Use
  Company Number: US-PFIZER INC-2007068361

PATIENT
  Sex: Female
  Weight: 60.909 kg

DRUGS (1)
  1. NORVASC [Suspect]
     Indication: HYPERTENSION
     Dosage: 5 MG ONCE DAILY
     Dates: start: 20070401

REACTIONS (2)
  - ANGINA PECTORIS [None]
  - OEDEMA PERIPHERAL [None]
